FAERS Safety Report 9369785 (Version 1)
Quarter: 2013Q2

REPORT INFORMATION
  Report Type: Spontaneous
  Country: US (occurrence: US)
  Receive Date: 20130626
  Receipt Date: 20130626
  Transmission Date: 20140414
  Serious: Yes (Hospitalization, Other)
  Sender: FDA-Public Use
  Company Number: US-PFIZER INC-K200701566

PATIENT
  Age: 51 Year
  Sex: Female
  Weight: 109 kg

DRUGS (6)
  1. LEVOXYL [Suspect]
     Indication: THYROID DISORDER
     Dosage: 25 UG, 1X/DAY
     Dates: end: 200706
  2. LEVOXYL [Suspect]
     Dosage: 25 UG, 1X/DAY
     Dates: start: 20071117, end: 20071122
  3. LEVOXYL [Suspect]
     Dosage: 12.5 UG, 1X/DAY
     Dates: start: 200711, end: 200712
  4. LEVOXYL [Suspect]
     Dosage: 25 UG, 1X/DAY
     Dates: start: 200712
  5. PREMARIN [Concomitant]
     Indication: HORMONE THERAPY
     Dosage: UNK
     Dates: start: 200611, end: 200706
  6. ZYRTEC [Concomitant]
     Indication: HYPERSENSITIVITY
     Dosage: UNK

REACTIONS (15)
  - Vital functions abnormal [Not Recovered/Not Resolved]
  - Paralysis [Not Recovered/Not Resolved]
  - Feeling abnormal [Not Recovered/Not Resolved]
  - Hypoaesthesia [Not Recovered/Not Resolved]
  - Dyspnoea [Not Recovered/Not Resolved]
  - Headache [Not Recovered/Not Resolved]
  - Musculoskeletal discomfort [Not Recovered/Not Resolved]
  - Balance disorder [Not Recovered/Not Resolved]
  - Thyroid function test abnormal [Not Recovered/Not Resolved]
  - Asthenia [Not Recovered/Not Resolved]
  - Mental impairment [Unknown]
  - Somnolence [Not Recovered/Not Resolved]
  - Speech disorder [Unknown]
  - Vital capacity abnormal [Unknown]
  - Asthenia [Unknown]
